FAERS Safety Report 8574157-5 (Version None)
Quarter: 2012Q3

REPORT INFORMATION
  Report Type: 
  Country: None (occurrence: None)
  Receive Date: 20120806
  Receipt Date: 20120723
  Transmission Date: 20120928
  Serious: No
  Sender: FDA-Public Use
  Company Number: US-ASTRAZENECA-2012SE47640

PATIENT
  Age: 47 Year
  Sex: Male

DRUGS (4)
  1. METOPROLOL TARTRATE [Suspect]
     Dosage: GENERIC
     Route: 048
  2. LEVOTHYROXINE SODIUM [Concomitant]
  3. TOPROL-XL [Suspect]
     Route: 048
  4. COUMADIN [Concomitant]

REACTIONS (5)
  - CARDIAC DISORDER [None]
  - THYROID DISORDER [None]
  - PALPITATIONS [None]
  - NERVOUSNESS [None]
  - HEART RATE IRREGULAR [None]
